FAERS Safety Report 6661622-0 (Version None)
Quarter: 2010Q1

REPORT INFORMATION
  Report Type: 
  Country: None (occurrence: None)
  Receive Date: 20100331
  Receipt Date: 20090310
  Transmission Date: 20100710
  Serious: Yes (Death, Hospitalization)
  Sender: FDA-Public Use
  Company Number: US-BRISTOL-MYERS SQUIBB COMPANY-14527485

PATIENT
  Age: 61 Year
  Sex: Male

DRUGS (2)
  1. ERBITUX [Suspect]
     Indication: COLON CANCER
     Dosage: RECEIVED 2 TO 3 CCS TAKEN 10-15ML OF 1075 MG DOSE BEFORE EVENT OCCURED
     Route: 042
     Dates: start: 20090217, end: 20090217
  2. BENADRYL [Concomitant]
     Route: 042

REACTIONS (1)
  - ANAPHYLACTIC REACTION [None]
